FAERS Safety Report 23920090 (Version 1)
Quarter: 2024Q2

REPORT INFORMATION
  Report Type: Spontaneous
  Country: US (occurrence: None)
  Receive Date: 20240530
  Receipt Date: 20240530
  Transmission Date: 20240715
  Serious: Yes (Hospitalization)
  Sender: FDA-Public Use
  Company Number: None

PATIENT
  Sex: Female
  Weight: 72.2 kg

DRUGS (1)
  1. VYXEOS [Suspect]
     Active Substance: CYTARABINE\DAUNORUBICIN
     Dates: start: 20240513

REACTIONS (10)
  - Asthenia [None]
  - Cough [None]
  - Dyspnoea at rest [None]
  - Tachypnoea [None]
  - Pleural effusion [None]
  - Pulmonary oedema [None]
  - Cerebral haemorrhage [None]
  - Haemoglobin decreased [None]
  - Neutrophil count decreased [None]
  - Acute respiratory failure [None]

NARRATIVE: CASE EVENT DATE: 20240523
